FAERS Safety Report 8881951 (Version 3)
Quarter: 2013Q1

REPORT INFORMATION
  Report Type: Spontaneous
  Country: US (occurrence: US)
  Receive Date: 20121102
  Receipt Date: 20130102
  Transmission Date: 20140127
  Serious: Yes (Hospitalization, Other)
  Sender: FDA-Public Use
  Company Number: US-ASTRAZENECA-2012SE81112

PATIENT
  Age: 60 Year
  Sex: Male
  Weight: 79.4 kg

DRUGS (2)
  1. NEXIUM [Suspect]
     Indication: GASTROOESOPHAGEAL REFLUX DISEASE
     Route: 048
     Dates: start: 2011, end: 201203
  2. NEXIUM [Suspect]
     Indication: GASTROOESOPHAGEAL REFLUX DISEASE
     Route: 048
     Dates: start: 201210

REACTIONS (9)
  - Oesophageal achalasia [Unknown]
  - Barrett^s oesophagus [Unknown]
  - Hyperchlorhydria [Unknown]
  - Dysphagia [Unknown]
  - Oesophageal irritation [Unknown]
  - Weight decreased [Unknown]
  - Pharyngeal disorder [Unknown]
  - Abdominal pain upper [Unknown]
  - Off label use [Recovered/Resolved]
